FAERS Safety Report 10244245 (Version 2)
Quarter: 2015Q2

REPORT INFORMATION
  Report Type: Spontaneous
  Country: CA (occurrence: CA)
  Receive Date: 20140618
  Receipt Date: 20150403
  Transmission Date: 20150821
  Serious: Yes (Death, Hospitalization)
  Sender: FDA-Public Use
  Company Number: CA-PFIZER INC-2014162839

PATIENT
  Age: 25 Year
  Sex: Male

DRUGS (16)
  1. BLEOMYCIN [Suspect]
     Active Substance: BLEOMYCIN SULFATE
     Indication: CHORIOCARCINOMA
  2. MATULANE [Suspect]
     Active Substance: PROCARBAZINE HYDROCHLORIDE
     Indication: HODGKIN^S DISEASE
  3. PREDNISONE. [Suspect]
     Active Substance: PREDNISONE
     Indication: CHORIOCARCINOMA
     Route: 048
  4. BLEOMYCIN [Suspect]
     Active Substance: BLEOMYCIN SULFATE
     Indication: HODGKIN^S DISEASE
  5. VINBLASTINE [Suspect]
     Active Substance: VINBLASTINE
     Indication: HODGKIN^S DISEASE
  6. ADRIAMYCIN [Suspect]
     Active Substance: DOXORUBICIN HYDROCHLORIDE
     Indication: CHORIOCARCINOMA
  7. VINBLASTINE [Suspect]
     Active Substance: VINBLASTINE
     Indication: CHORIOCARCINOMA
  8. ADRIAMYCIN [Suspect]
     Active Substance: DOXORUBICIN HYDROCHLORIDE
     Indication: HODGKIN^S DISEASE
  9. MATULANE [Suspect]
     Active Substance: PROCARBAZINE HYDROCHLORIDE
     Indication: CHORIOCARCINOMA
  10. DACARBAZINE. [Suspect]
     Active Substance: DACARBAZINE
     Indication: CHORIOCARCINOMA
  11. NITROGEN MUSTARD [Suspect]
     Active Substance: MECHLORETHAMINE OXIDE HYDROCHLORIDE
     Indication: HODGKIN^S DISEASE
  12. ONCOVIN [Suspect]
     Active Substance: VINCRISTINE SULFATE
     Indication: CHORIOCARCINOMA
     Dosage: 1 MG/ML, UNK
  13. DACARBAZINE. [Suspect]
     Active Substance: DACARBAZINE
     Indication: HODGKIN^S DISEASE
  14. NITROGEN MUSTARD [Suspect]
     Active Substance: MECHLORETHAMINE OXIDE HYDROCHLORIDE
     Indication: CHORIOCARCINOMA
  15. ONCOVIN [Suspect]
     Active Substance: VINCRISTINE SULFATE
     Indication: HODGKIN^S DISEASE
  16. PREDNISONE. [Suspect]
     Active Substance: PREDNISONE
     Indication: HODGKIN^S DISEASE

REACTIONS (3)
  - Respiratory failure [Fatal]
  - Choriocarcinoma [Fatal]
  - Disease progression [Fatal]
